FAERS Safety Report 4918716-7 (Version None)
Quarter: 2006Q1

REPORT INFORMATION
  Report Type: 
  Country: None (occurrence: None)
  Receive Date: 20060216
  Receipt Date: 20060203
  Transmission Date: 20060701
  Serious: Yes (Other)
  Sender: FDA-Public Use
  Company Number: 2005169765

PATIENT
  Age: 64 Year
  Sex: Female
  Weight: 68.4932 kg

DRUGS (4)
  1. DETROL LA [Suspect]
     Indication: HYPERTONIC BLADDER
     Dosage: 4 MG (4 MG, 1 IN 1 D), ORAL
     Route: 048
     Dates: start: 20030101
  2. SPIRIVA (TOLTROPIUM BROMIDE) [Concomitant]
  3. ALBUTEROL [Concomitant]
  4. ALL OTHER THERAPEUTIC PRODUCTS [Concomitant]

REACTIONS (4)
  - BLOOD PRESSURE FLUCTUATION [None]
  - FLUID RETENTION [None]
  - LUNG NEOPLASM MALIGNANT [None]
  - OEDEMA PERIPHERAL [None]
